FAERS Safety Report 7717170-X (Version None)
Quarter: 2011Q3

REPORT INFORMATION
  Report Type: 
  Country: None (occurrence: None)
  Receive Date: 20110830
  Receipt Date: 20110109
  Transmission Date: 20111222
  Serious: No
  Sender: FDA-Public Use
  Company Number: US-BAYER-2011-003090

PATIENT
  Sex: Female

DRUGS (1)
  1. MIRENA [Suspect]
     Indication: CONTRACEPTION
     Dosage: 20 MCG/24HR, UNK
     Dates: start: 20091101

REACTIONS (3)
  - VAGINAL DISCHARGE [None]
  - ABDOMINAL PAIN [None]
  - MENORRHAGIA [None]
